FAERS Safety Report 6379479-4 (Version None)
Quarter: 2009Q3

REPORT INFORMATION
  Report Type: 
  Country: None (occurrence: None)
  Receive Date: 20090928
  Receipt Date: 20090922
  Transmission Date: 20100115
  Serious: Yes (Death, Hospitalization)
  Sender: FDA-Public Use
  Company Number: B0595060A

PATIENT
  Sex: Female

DRUGS (7)
  1. ARIXTRA [Suspect]
     Indication: DRUG USE FOR UNKNOWN INDICATION
     Dosage: 2.5MG PER DAY
     Route: 058
     Dates: start: 20090401, end: 20090630
  2. ACETAMINOPHEN [Concomitant]
     Dosage: 1G FOUR TIMES PER DAY
     Route: 048
  3. KEPPRA [Concomitant]
     Dosage: 1G TWICE PER DAY
     Route: 048
  4. BELOC ZOK [Concomitant]
     Dosage: 25MG PER DAY
     Route: 048
  5. NEXIUM [Concomitant]
     Dosage: 40MG PER DAY
  6. CIPRALEX [Concomitant]
     Dosage: 5MG PER DAY
     Route: 048
     Dates: start: 20090625
  7. MALTOFER [Concomitant]
     Dosage: 100MG PER DAY
     Route: 048

REACTIONS (1)
  - SUBDURAL HAEMATOMA [None]
